FAERS Safety Report 18695285 (Version 1)
Quarter: 2021Q1

REPORT INFORMATION
  Report Type: Spontaneous
  Country: CN (occurrence: CN)
  Receive Date: 20210104
  Receipt Date: 20210104
  Transmission Date: 20210419
  Serious: Yes (Hospitalization, Other)
  Sender: FDA-Public Use
  Company Number: CN-RISING PHARMA HOLDINGS, INC.-2020RIS000268

PATIENT
  Age: 37 Year
  Sex: Male

DRUGS (5)
  1. VORICONAZOLE. [Suspect]
     Active Substance: VORICONAZOLE
     Indication: CEREBRAL ASPERGILLOSIS
     Dosage: 200 MILLIGRAM, EVERY 12 HOURS
     Route: 048
  2. VORICONAZOLE. [Suspect]
     Active Substance: VORICONAZOLE
     Dosage: 300 MILLIGRAM, EVERY 12 HOURS
     Route: 048
  3. VORICONAZOLE. [Suspect]
     Active Substance: VORICONAZOLE
     Dosage: 200 MILLIGRAM,  EVERY 12 HOURS
     Route: 048
  4. VORICONAZOLE. [Suspect]
     Active Substance: VORICONAZOLE
     Dosage: 175 MILLIGRAM,  EVERY 12 HOURS
     Route: 048
  5. VORICONAZOLE. [Suspect]
     Active Substance: VORICONAZOLE
     Dosage: 150 MILLIGRAM,  EVERY 12 HOURS
     Route: 048

REACTIONS (3)
  - Cystitis haemorrhagic [Recovered/Resolved]
  - Urinary bladder rupture [Recovered/Resolved]
  - Cerebral infarction [Not Recovered/Not Resolved]
